FAERS Safety Report 9847441 (Version 4)
Quarter: 2014Q4

REPORT INFORMATION
  Report Type: Report from Study
  Country: NL (occurrence: NL)
  Receive Date: 20140127
  Receipt Date: 20141126
  Transmission Date: 20150529
  Serious: Yes (Other)
  Sender: FDA-Public Use
  Company Number: NL-US-EMD SERONO, INC.-7264756

PATIENT
  Age: 39 Year
  Sex: Male
  Weight: 90 kg

DRUGS (1)
  1. REBIF [Suspect]
     Active Substance: INTERFERON BETA-1A
     Indication: MULTIPLE SCLEROSIS
     Route: 058
     Dates: start: 2003, end: 20140101

REACTIONS (8)
  - Decreased immune responsiveness [Unknown]
  - Pneumonia [Recovering/Resolving]
  - Influenza [Unknown]
  - Visual acuity reduced [Recovered/Resolved]
  - Gait disturbance [Recovered/Resolved]
  - Fatigue [Unknown]
  - Sensory disturbance [Recovered/Resolved]
  - Pituitary enlargement [Unknown]

NARRATIVE: CASE EVENT DATE: 2013
